FAERS Safety Report 4972879-6 (Version None)
Quarter: 2006Q2

REPORT INFORMATION
  Report Type: 
  Country: None (occurrence: None)
  Receive Date: 20060410
  Receipt Date: 20060327
  Transmission Date: 20061013
  Serious: Yes (Other)
  Sender: FDA-Public Use
  Company Number: 2005PV005461

PATIENT
  Age: 55 Year
  Sex: Male
  Weight: 131.5431 kg

DRUGS (15)
  1. BYETTA [Suspect]
     Indication: DIABETES MELLITUS NON-INSULIN-DEPENDENT
     Dosage: SEE IMAGE
     Route: 058
     Dates: start: 20050101, end: 20050101
  2. BYETTA [Suspect]
     Indication: DIABETES MELLITUS NON-INSULIN-DEPENDENT
     Dosage: SEE IMAGE
     Route: 058
     Dates: start: 20050401
  3. URSODIL [Concomitant]
  4. CYCLOBENZAPRINE HCL [Concomitant]
  5. ADIPEX-P [Concomitant]
  6. VYTORIN [Concomitant]
  7. BENICAR HCT [Concomitant]
  8. ANDROGEL [Concomitant]
  9. LASIX [Concomitant]
  10. CLONAZEPAM [Concomitant]
  11. PRANDIN [Concomitant]
  12. MOBIC [Concomitant]
  13. ULTRAM [Concomitant]
  14. LEVOXYL [Concomitant]
  15. ACTOS [Concomitant]

REACTIONS (3)
  - FOLLICULAR THYROID CANCER [None]
  - GOITRE [None]
  - WEIGHT INCREASED [None]
